FAERS Safety Report 7454454-7 (Version None)
Quarter: 2011Q2

REPORT INFORMATION
  Report Type: 
  Country: None (occurrence: None)
  Receive Date: 20110425
  Receipt Date: 20110408
  Transmission Date: 20111010
  Serious: Yes (Other)
  Sender: FDA-Public Use
  Company Number: AUR-APL-2011-01228

PATIENT
  Age: 78 Year
  Sex: Female
  Weight: 56 kg

DRUGS (8)
  1. LEVOTHYROXINE SODIUM [Concomitant]
  2. PREDNISOLONE [Concomitant]
  3. DOXYCYCLINE [Concomitant]
  4. ALENDRONATE SODIUM [Suspect]
     Dosage: 70MG-Q WEEK
     Dates: start: 20110330
  5. TRAMADOL HYDROCHLORIDE [Concomitant]
  6. SERETIDE [Concomitant]
  7. ALBUTEROL SULFATE AUTOHALER [Concomitant]
  8. TIOTROPIUM BROMIDE [Concomitant]

REACTIONS (1)
  - HICCUPS [None]
